FAERS Safety Report 4345233-8 (Version None)
Quarter: 2004Q2

REPORT INFORMATION
  Report Type: 
  Country: None (occurrence: None)
  Receive Date: 20040423
  Receipt Date: 20040415
  Transmission Date: 20050107
  Serious: Yes (Life-Threatening)
  Sender: FDA-Public Use
  Company Number: IT-ROCHE-364559

PATIENT
  Age: 76 Year
  Sex: Male

DRUGS (14)
  1. ROCEPHIN [Suspect]
     Indication: BRONCHOPNEUMONIA
     Route: 042
     Dates: start: 20040301, end: 20040304
  2. KLACID [Suspect]
     Indication: BRONCHOPNEUMONIA
     Route: 048
     Dates: start: 20040301, end: 20040303
  3. PARIET [Concomitant]
     Indication: DRUG USE FOR UNKNOWN INDICATION
     Route: 048
  4. DILATREND [Concomitant]
     Indication: DRUG USE FOR UNKNOWN INDICATION
     Route: 048
     Dates: end: 20040304
  5. TALOFEN [Concomitant]
     Indication: DRUG USE FOR UNKNOWN INDICATION
     Route: 048
  6. EUTIROX [Concomitant]
     Indication: DRUG USE FOR UNKNOWN INDICATION
     Route: 048
     Dates: end: 20040304
  7. ACETYLCYSTEINE [Concomitant]
     Indication: DRUG USE FOR UNKNOWN INDICATION
     Dosage: STRENGTH REPORTED AS 300MG/3ML.
     Route: 050
     Dates: start: 20040301, end: 20040305
  8. URBASON [Concomitant]
     Indication: DRUG USE FOR UNKNOWN INDICATION
     Route: 030
     Dates: start: 20040302, end: 20040302
  9. CORDARONE [Concomitant]
     Indication: DRUG USE FOR UNKNOWN INDICATION
     Route: 048
  10. LASIX [Concomitant]
     Indication: DRUG USE FOR UNKNOWN INDICATION
     Route: 048
     Dates: end: 20040303
  11. REVIVAN [Concomitant]
     Indication: DRUG USE FOR UNKNOWN INDICATION
     Dosage: STRENGTH REPORTED AS 200MG/5ML.
     Route: 042
     Dates: start: 20040304, end: 20040304
  12. ZITHROMAX [Concomitant]
     Indication: DRUG USE FOR UNKNOWN INDICATION
     Route: 048
     Dates: start: 20040304, end: 20040306
  13. ALLOPURINOL TAB [Concomitant]
     Indication: DRUG USE FOR UNKNOWN INDICATION
     Route: 048
     Dates: start: 20040304, end: 20040309
  14. TORADIUR [Concomitant]
     Indication: DRUG USE FOR UNKNOWN INDICATION
     Dosage: STRENGTH REPORTED AS 200MG/20ML.
     Route: 048
     Dates: start: 20040304, end: 20040304

REACTIONS (1)
  - MULTI-ORGAN FAILURE [None]
